FAERS Safety Report 19901595 (Version 2)
Quarter: 2021Q4

REPORT INFORMATION
  Report Type: Report from Study
  Country: AU (occurrence: AU)
  Receive Date: 20210930
  Receipt Date: 20211011
  Transmission Date: 20220303
  Serious: Yes (Hospitalization)
  Sender: FDA-Public Use
  Company Number: AU-ROCHE-2872996

PATIENT
  Age: 75 Year
  Sex: Male
  Weight: 87 kg

DRUGS (24)
  1. INVESTIGATIONAL PRODUCT [Suspect]
     Active Substance: INVESTIGATIONAL PRODUCT
     Indication: B-cell lymphoma
     Dosage: ON 16/SEP/2021, THE PATIENT WAS RECEIVED THE MOST RECENT DOSE OF STUDY DRUG (2800 UG) PRIOR TO AE/SA
     Route: 042
     Dates: start: 20210802
  2. GLOFITAMAB [Suspect]
     Active Substance: GLOFITAMAB
     Indication: B-cell lymphoma
     Dosage: START DATE OF MOST RECENT DOSE OF STUDY DRUG PRIOR TO AE 14/JUL/2021 10:42 AM TO 2:50 PM (10 MG).?ST
     Route: 042
     Dates: start: 20210706
  3. OBINUTUZUMAB [Suspect]
     Active Substance: OBINUTUZUMAB
     Indication: B-cell lymphoma
     Dosage: START DATE OF MOST RECENT DOSE OF STUDY DRUG PRIOR TO AE 29/JUN/2021 10:11 AM TO 10:44 AM
     Route: 042
     Dates: start: 20210629
  4. TOCILIZUMAB [Suspect]
     Active Substance: TOCILIZUMAB
     Indication: B-cell lymphoma
     Dosage: ON 19/JUL/2021, AT 6:01 PM THE PATIENT WAS RECEIVED THE MOST RECENT DOSE OF STUDY DRUG (680 MG) PRIO
     Route: 042
     Dates: start: 20210719
  5. FLUDEOXYGLUCOSE F-18 [Suspect]
     Active Substance: FLUDEOXYGLUCOSE F-18
     Indication: B-cell lymphoma
     Dosage: START DATE OF MOST RECENT DOSE OF STUDY DRUG PRIOR TO AE 16/JUN/2021 1:48 PM?START DATE OF MOST RECE
     Route: 042
     Dates: start: 20210616
  6. LORATADINE [Concomitant]
     Active Substance: LORATADINE
     Route: 048
     Dates: start: 20210629, end: 20210629
  7. LORATADINE [Concomitant]
     Active Substance: LORATADINE
     Route: 048
     Dates: start: 20210706, end: 20210706
  8. LORATADINE [Concomitant]
     Active Substance: LORATADINE
     Route: 048
     Dates: start: 20210708, end: 20210708
  9. LORATADINE [Concomitant]
     Active Substance: LORATADINE
     Route: 048
     Dates: start: 20210714, end: 20210714
  10. LORATADINE [Concomitant]
     Active Substance: LORATADINE
     Route: 048
     Dates: start: 20210916, end: 20210916
  11. ACETAMINOPHEN [Concomitant]
     Active Substance: ACETAMINOPHEN
     Route: 048
     Dates: start: 20210629, end: 20210629
  12. ACETAMINOPHEN [Concomitant]
     Active Substance: ACETAMINOPHEN
     Route: 042
     Dates: start: 20210706, end: 20210706
  13. ACETAMINOPHEN [Concomitant]
     Active Substance: ACETAMINOPHEN
     Route: 048
     Dates: start: 20210708, end: 20210708
  14. ACETAMINOPHEN [Concomitant]
     Active Substance: ACETAMINOPHEN
     Route: 048
     Dates: start: 20210714, end: 20210714
  15. ACETAMINOPHEN [Concomitant]
     Active Substance: ACETAMINOPHEN
     Route: 048
     Dates: start: 20210916, end: 20210916
  16. METHYLPREDNISOLONE [Concomitant]
     Active Substance: METHYLPREDNISOLONE
     Route: 042
     Dates: start: 20210629, end: 20210629
  17. METHYLPREDNISOLONE [Concomitant]
     Active Substance: METHYLPREDNISOLONE
     Route: 042
     Dates: start: 20210916, end: 20210916
  18. DEXAMETHASONE [Concomitant]
     Active Substance: DEXAMETHASONE
     Route: 042
     Dates: start: 20210706, end: 20210706
  19. DEXAMETHASONE [Concomitant]
     Active Substance: DEXAMETHASONE
     Route: 042
     Dates: start: 20210708, end: 20210708
  20. DEXAMETHASONE [Concomitant]
     Active Substance: DEXAMETHASONE
     Route: 042
     Dates: start: 20210714, end: 20210714
  21. VALACYCLOVIR HYDROCHLORIDE [Concomitant]
     Active Substance: VALACYCLOVIR HYDROCHLORIDE
     Indication: Prophylaxis
     Route: 048
     Dates: start: 20210629
  22. ALLOPURINOL [Concomitant]
     Active Substance: ALLOPURINOL
     Indication: Prophylaxis
     Route: 048
     Dates: start: 20210628
  23. SULFAMETHOXAZOLE\TRIMETHOPRIM [Concomitant]
     Active Substance: SULFAMETHOXAZOLE\TRIMETHOPRIM
     Indication: Prophylaxis
     Route: 048
     Dates: start: 20210628
  24. METRONIDAZOLE [Concomitant]
     Active Substance: METRONIDAZOLE
     Indication: Infection
     Route: 048
     Dates: start: 20210910, end: 20210915

REACTIONS (2)
  - Cytokine release syndrome [Recovered/Resolved]
  - Cytokine release syndrome [Recovered/Resolved]

NARRATIVE: CASE EVENT DATE: 20210716
